FAERS Safety Report 8112077-0 (Version None)
Quarter: 2012Q1

REPORT INFORMATION
  Report Type: 
  Country: None (occurrence: None)
  Receive Date: 20120203
  Receipt Date: 20120126
  Transmission Date: 20120608
  Serious: Yes (Hospitalization)
  Sender: FDA-Public Use
  Company Number: US-PFIZER INC-2012020989

PATIENT
  Sex: Male

DRUGS (3)
  1. TEMSIROLIMUS [Suspect]
     Indication: HYPOPHARYNGEAL CANCER
     Dosage: UNK
     Dates: start: 20111214, end: 20120111
  2. CARBOPLATIN [Suspect]
     Indication: HYPOPHARYNGEAL CANCER
     Dosage: UNK
     Dates: start: 20111214, end: 20120111
  3. TAXOL [Suspect]
     Indication: HYPOPHARYNGEAL CANCER
     Dosage: UNK
     Dates: start: 20111214, end: 20120111

REACTIONS (2)
  - FEBRILE NEUTROPENIA [None]
  - ABDOMINAL PAIN [None]
